FAERS Safety Report 4370011-3 (Version None)
Quarter: 2004Q2

REPORT INFORMATION
  Report Type: 
  Country: None (occurrence: None)
  Receive Date: 20040603
  Receipt Date: 20040524
  Transmission Date: 20050107
  Serious: Yes (Other)
  Sender: FDA-Public Use
  Company Number: PHFR2004GB02221

PATIENT
  Age: 72 Year
  Sex: Male

DRUGS (6)
  1. METOPROLOL TARTRATE [Suspect]
     Indication: TACHYARRHYTHMIA
     Dosage: 50MG/DAY
     Route: 048
     Dates: start: 20040331, end: 20040413
  2. WARFARIN SODIUM [Concomitant]
     Indication: ATRIAL FIBRILLATION
     Route: 048
     Dates: start: 20030101
  3. ATORVASTATIN CALCIUM [Concomitant]
     Indication: ATRIAL FIBRILLATION
     Dosage: 40MG/DAY
     Route: 048
     Dates: start: 20020101
  4. DIAZEPAM [Concomitant]
     Route: 065
  5. GTN [Concomitant]
     Route: 065
  6. TRAMADOL HCL [Concomitant]
     Route: 065

REACTIONS (1)
  - GYNAECOMASTIA [None]
